FAERS Safety Report 5017076-3 (Version None)
Quarter: 2006Q2

REPORT INFORMATION
  Report Type: 
  Country: None (occurrence: None)
  Receive Date: 20060526
  Receipt Date: 20060517
  Transmission Date: 20061013
  Serious: Yes (Hospitalization)
  Sender: FDA-Public Use
  Company Number: SU-2006-004953

PATIENT
  Age: 65 Year
  Sex: Female
  Weight: 61.2356 kg

DRUGS (10)
  1. BENICAR HCT [Suspect]
     Indication: HYPERTENSION
     Dosage: 40.125 MG QD PO
     Route: 048
  2. LEVAQUIN [Suspect]
     Indication: SINUSITIS
     Dosage: 500 MG QD PO
     Route: 048
     Dates: start: 20060216, end: 20060217
  3. MUCINEX [Concomitant]
  4. LOPRESSOR [Concomitant]
  5. EVISTA [Concomitant]
  6. ZOCOR [Concomitant]
  7. TRIAVIL [Concomitant]
  8. CENTRUM SILVER [Concomitant]
  9. CALCIUM GLUCONATE [Concomitant]
  10. FLAXSEED OIL [Concomitant]

REACTIONS (20)
  - ABDOMINAL PAIN UPPER [None]
  - ALANINE AMINOTRANSFERASE INCREASED [None]
  - ARTHRALGIA [None]
  - ASPARTATE AMINOTRANSFERASE INCREASED [None]
  - CEREBRAL DISORDER [None]
  - CONTUSION [None]
  - DIARRHOEA [None]
  - FACE OEDEMA [None]
  - FEELING ABNORMAL [None]
  - GRAND MAL CONVULSION [None]
  - HEPATIC ENZYME INCREASED [None]
  - HYPOMAGNESAEMIA [None]
  - HYPONATRAEMIA [None]
  - MALAISE [None]
  - MENTAL STATUS CHANGES [None]
  - PAIN IN EXTREMITY [None]
  - PHARYNGEAL OEDEMA [None]
  - STOMACH DISCOMFORT [None]
  - SWELLING FACE [None]
  - VISUAL DISTURBANCE [None]
